FAERS Safety Report 9009054 (Version 1)
Quarter: 2013Q1

REPORT INFORMATION
  Report Type: Spontaneous
  Country: US (occurrence: US)
  Receive Date: 20130111
  Receipt Date: 20130111
  Transmission Date: 20140127
  Serious: Yes (Death)
  Sender: FDA-Public Use
  Company Number: US-BAYER-2013-002169

PATIENT
  Age: 58 Year
  Sex: Female

DRUGS (5)
  1. ASPIRIN AND CAFFEINE [Suspect]
     Route: 048
  2. CARDIAC GLYCOSIDE [Suspect]
     Route: 048
  3. DULOXETINE [Suspect]
     Route: 048
  4. CLOPIDOGREL [Suspect]
     Route: 048
  5. OMEPRAZOLE [Suspect]
     Route: 048

REACTIONS (4)
  - Toxicity to various agents [Fatal]
  - Intentional overdose [Fatal]
  - Respiratory arrest [None]
  - Cardiac arrest [None]
